FAERS Safety Report 6862073-6 (Version None)
Quarter: 2010Q3

REPORT INFORMATION
  Report Type: 
  Country: None (occurrence: None)
  Receive Date: 20100721
  Receipt Date: 20100712
  Transmission Date: 20110219
  Serious: Yes (Hospitalization)
  Sender: FDA-Public Use
  Company Number: BR-ASTRAZENECA-2010SE32600

PATIENT
  Age: 51 Year
  Sex: Male
  Weight: 100 kg

DRUGS (3)
  1. SYMBICORT [Suspect]
     Indication: ASTHMA
     Dosage: 320/9 MCGS
     Route: 055
     Dates: start: 20090701
  2. ATACAND HCT [Suspect]
     Indication: HYPERTENSION
     Dosage: 8/12.5 MGS
     Route: 048
     Dates: start: 20100601
  3. LOSARTAN POSTASSIUM [Concomitant]
     Indication: HYPERTENSION
     Route: 048
     Dates: start: 20090601, end: 20100601

REACTIONS (4)
  - GALLBLADDER DISORDER [None]
  - HEPATIC ENZYME ABNORMAL [None]
  - INCORRECT DOSE ADMINISTERED [None]
  - WHEEZING [None]
